FAERS Safety Report 14601954 (Version 1)
Quarter: 2018Q1

REPORT INFORMATION
  Report Type: Spontaneous
  Country: US (occurrence: US)
  Receive Date: 20180306
  Receipt Date: 20180306
  Transmission Date: 20180509
  Serious: No
  Sender: FDA-Public Use
  Company Number: US-ASTRAZENECA-2018SE16849

PATIENT
  Age: 52 Year
  Sex: Female

DRUGS (1)
  1. CASODEX [Suspect]
     Active Substance: BICALUTAMIDE
     Route: 065

REACTIONS (2)
  - Nipple pain [Unknown]
  - Accidental exposure to product [Unknown]
